FAERS Safety Report 8857556 (Version 1)
Quarter: 2012Q4

REPORT INFORMATION
  Report Type: Report from Study
  Country: SG (occurrence: SG)
  Receive Date: 20121024
  Receipt Date: 20121024
  Transmission Date: 20130627
  Serious: Yes (Hospitalization)
  Sender: FDA-Public Use
  Company Number: SG-GLAXOSMITHKLINE-B0839771A

PATIENT
  Age: 29 Year
  Sex: Female

DRUGS (3)
  1. LAPATINIB [Suspect]
     Indication: BREAST NEOPLASM
     Dosage: 750MG Per day
     Route: 048
     Dates: start: 20120802
  2. PACLITAXEL [Suspect]
     Indication: BREAST NEOPLASM
     Dosage: 116MG Weekly
     Route: 042
     Dates: start: 20120802
  3. CARBOPLATIN [Suspect]
     Indication: BREAST NEOPLASM
     Dosage: 300MG Cyclic
     Route: 042
     Dates: start: 20120802

REACTIONS (1)
  - Anal abscess [Not Recovered/Not Resolved]
